FAERS Safety Report 10145987 (Version 1)
Quarter: 2014Q2

REPORT INFORMATION
  Report Type: Spontaneous
  Country: IN (occurrence: IN)
  Receive Date: 20140501
  Receipt Date: 20140501
  Transmission Date: 20141212
  Serious: Yes (Hospitalization)
  Sender: FDA-Public Use
  Company Number: IN-MYLANLABS-2014S1009359

PATIENT
  Age: 32 Year
  Sex: Male

DRUGS (5)
  1. DIGOXIN [Suspect]
     Indication: OVERDOSE
     Dosage: CONSUMED LARGE DOSE
     Route: 065
  2. DIGOXIN [Suspect]
     Indication: OFF LABEL USE
     Dosage: CONSUMED LARGE DOSE
     Route: 065
  3. PROPRANOLOL [Suspect]
     Indication: OVERDOSE
     Dosage: CONSUMED LARGE DOSE
     Route: 065
  4. PROPRANOLOL [Suspect]
     Indication: OFF LABEL USE
     Dosage: CONSUMED LARGE DOSE
     Route: 065
  5. INSULIN [Suspect]
     Indication: OVERDOSE
     Dosage: ADMINISTERED LARGE DOSE
     Route: 065

REACTIONS (4)
  - Overdose [Recovering/Resolving]
  - Toxicity to various agents [Recovered/Resolved]
  - Toxicity to various agents [Unknown]
  - Suicidal ideation [Recovering/Resolving]
